FAERS Safety Report 5069562-8 (Version None)
Quarter: 2006Q3

REPORT INFORMATION
  Report Type: 
  Country: None (occurrence: None)
  Receive Date: 20060803
  Receipt Date: 20060725
  Transmission Date: 20061208
  Serious: Yes (Death)
  Sender: FDA-Public Use
  Company Number: US-AMGEN-US187860

PATIENT
  Sex: Female

DRUGS (1)
  1. ENBREL [Suspect]
     Indication: RHEUMATOID ARTHRITIS
     Dates: start: 19970101, end: 20051231

REACTIONS (1)
  - DEMENTIA [None]
